FAERS Safety Report 10107378 (Version 2)
Quarter: 2014Q3

REPORT INFORMATION
  Report Type: Other
  Country: US (occurrence: US)
  Receive Date: 20140424
  Receipt Date: 20140911
  Transmission Date: 20150326
  Serious: Yes (Hospitalization, Other)
  Sender: FDA-Public Use
  Company Number: US-GSKPPD-2014GSK005148

PATIENT
  Age: 56 Year

DRUGS (1)
  1. AVANDIA [Suspect]
     Active Substance: ROSIGLITAZONE MALEATE
     Indication: DIABETES MELLITUS
     Dosage: DATE OF AVANDIA USE COULD NOT BE CONFIRMED IN RECORDS REVIEWED.
     Route: 048

REACTIONS (5)
  - Angina unstable [Unknown]
  - Aortic stenosis [Unknown]
  - Coronary artery bypass [Unknown]
  - Hypertension [Unknown]
  - Coronary artery disease [Unknown]

NARRATIVE: CASE EVENT DATE: 20091211
